FAERS Safety Report 11018495 (Version 2)
Quarter: 2015Q2

REPORT INFORMATION
  Report Type: Spontaneous
  Country: US (occurrence: US)
  Receive Date: 20150412
  Receipt Date: 20150524
  Transmission Date: 20150821
  Serious: Yes (Other)
  Sender: FDA-Public Use
  Company Number: US-JNJFOC-20130704439

PATIENT

DRUGS (9)
  1. DOXORUBICIN [Suspect]
     Active Substance: DOXORUBICIN
     Indication: PERIPHERAL T-CELL LYMPHOMA UNSPECIFIED
     Dosage: LESS THAN OR EQUAL TO 6-8 CYCLES, ON DAY 3
     Route: 042
  2. DEXAMETHASONE. [Concomitant]
     Active Substance: DEXAMETHASONE
     Indication: PREMEDICATION
     Dosage: 4-8 MG
     Route: 065
  3. VINCRISTINE [Suspect]
     Active Substance: VINCRISTINE
     Indication: PERIPHERAL T-CELL LYMPHOMA UNSPECIFIED
     Dosage: LESS THAN OR EQUAL TO 6-8 CYCLES, ON DAY 3
     Route: 042
  4. DIPHENHYDRAMINE [Concomitant]
     Active Substance: DIPHENHYDRAMINE
     Indication: PREMEDICATION
     Dosage: 4-8 MG
     Route: 042
  5. ONTAK [Suspect]
     Active Substance: DENILEUKIN DIFTITOX
     Indication: PERIPHERAL T-CELL LYMPHOMA UNSPECIFIED
     Dosage: DAYS 1, 2, EVERY 21 DAYS, LESS THAN OR EQUAL TO 6-8 CYCLES
     Route: 042
  6. ACETAMINOPHEN. [Concomitant]
     Active Substance: ACETAMINOPHEN
     Indication: PREMEDICATION
     Dosage: 4-8 MG
     Route: 048
  7. PREDNISONE. [Suspect]
     Active Substance: PREDNISONE
     Indication: PERIPHERAL T-CELL LYMPHOMA UNSPECIFIED
     Dosage: LESS THAN OR EQUAL TO 6-8 CYCLES, ON DAY 3-7
     Route: 048
  8. CYCLOPHOSPHAMIDE. [Suspect]
     Active Substance: CYCLOPHOSPHAMIDE
     Indication: PERIPHERAL T-CELL LYMPHOMA UNSPECIFIED
     Dosage: LESS THAN OR EQUAL TO 6-8 CYCLES, ON DAY 3
     Route: 042
  9. GRANULOCYTE COLONY-STIMULATING FACTOR [Concomitant]
     Active Substance: GRANULOCYTE COLONY-STIMULATING FACTOR NOS
     Indication: PROPHYLAXIS
     Dosage: 4-8 MG
     Route: 065

REACTIONS (1)
  - Hypersensitivity [Unknown]
